FAERS Safety Report 25716866 (Version 1)
Quarter: 2025Q3

REPORT INFORMATION
  Report Type: Report from Study
  Country: CN (occurrence: CN)
  Receive Date: 20250822
  Receipt Date: 20250822
  Transmission Date: 20251021
  Serious: Yes (Hospitalization, Other)
  Sender: Haleon PLC
  Company Number: CN-HALEON-2258943

PATIENT
  Age: 65 Year
  Sex: Male

DRUGS (1)
  1. DICLOFENAC SODIUM [Suspect]
     Active Substance: DICLOFENAC SODIUM
     Indication: Pain in extremity
     Route: 048

REACTIONS (5)
  - Gastric haemorrhage [Unknown]
  - Dizziness [Unknown]
  - Faeces discoloured [Unknown]
  - Haematochezia [Unknown]
  - Drug interaction [Unknown]
